FAERS Safety Report 15869797 (Version 2)
Quarter: 2019Q1

REPORT INFORMATION
  Report Type: Spontaneous
  Country: US (occurrence: US)
  Receive Date: 20190125
  Receipt Date: 20190326
  Transmission Date: 20190417
  Serious: Yes (Hospitalization, Other)
  Sender: FDA-Public Use
  Company Number: US-EX USA HOLDINGS-EXHL20190027

PATIENT
  Age: 41 Year
  Sex: Female

DRUGS (3)
  1. ISIBLOOM [Suspect]
     Active Substance: DESOGESTREL\ETHINYL ESTRADIOL
     Dosage: ONE TABLET
     Route: 048
     Dates: start: 20190106, end: 20190116
  2. ISIBLOOM [Suspect]
     Active Substance: DESOGESTREL\ETHINYL ESTRADIOL
     Indication: IN VITRO FERTILISATION
     Dosage: ONE TABLET
     Route: 048
     Dates: start: 20181022, end: 20181029
  3. LAMICTAL [Concomitant]
     Active Substance: LAMOTRIGINE
     Indication: EPILEPSY
     Dosage: 100 MG
     Route: 048
     Dates: start: 2012

REACTIONS (3)
  - Off label use [None]
  - Ventricular extrasystoles [Recovered/Resolved]
  - Ventricular tachycardia [Recovered/Resolved]

NARRATIVE: CASE EVENT DATE: 20181022
